FAERS Safety Report 9316682 (Version 1)
Quarter: 2013Q2

REPORT INFORMATION
  Report Type: Spontaneous
  Country: US (occurrence: None)
  Receive Date: 20130528
  Receipt Date: 20130528
  Transmission Date: 20140414
  Serious: Yes (Disabling, Other)
  Sender: FDA-Public Use
  Company Number: None

PATIENT
  Age: 42 Year
  Sex: Male
  Weight: 78.02 kg

DRUGS (1)
  1. LEVAQUIN 500MG UNKNOWN [Suspect]
     Indication: PROSTATITIS
     Route: 048
     Dates: start: 20120613, end: 20120627

REACTIONS (9)
  - Loss of libido [None]
  - Erectile dysfunction [None]
  - Headache [None]
  - Visual impairment [None]
  - Vitreous floaters [None]
  - Night blindness [None]
  - Vision blurred [None]
  - Benign intracranial hypertension [None]
  - Oral discomfort [None]
